FAERS Safety Report 10874151 (Version 3)
Quarter: 2015Q3

REPORT INFORMATION
  Report Type: Report from Study
  Country: US (occurrence: US)
  Receive Date: 20150227
  Receipt Date: 20150724
  Transmission Date: 20151125
  Serious: Yes (Other)
  Sender: FDA-Public Use
  Company Number: US-SA-2014SA118256

PATIENT
  Age: 43 Year
  Sex: Female

DRUGS (1)
  1. AUBAGIO [Suspect]
     Active Substance: TERIFLUNOMIDE
     Indication: MULTIPLE SCLEROSIS
     Route: 048
     Dates: start: 20140722

REACTIONS (10)
  - Mucous stools [Unknown]
  - Skin ulcer [Unknown]
  - Decubitus ulcer [Unknown]
  - Wheelchair user [Unknown]
  - Abdominal pain upper [Recovering/Resolving]
  - Throat irritation [Recovered/Resolved]
  - Incorrect product storage [Unknown]
  - Alopecia [Recovered/Resolved]
  - Paranasal sinus discomfort [Unknown]
  - Pain [Unknown]

NARRATIVE: CASE EVENT DATE: 2014
